FAERS Safety Report 6812388-2 (Version None)
Quarter: 2010Q2

REPORT INFORMATION
  Report Type: 
  Country: None (occurrence: None)
  Receive Date: 20100628
  Receipt Date: 20100611
  Transmission Date: 20101027
  Serious: Yes (Other)
  Sender: FDA-Public Use
  Company Number: 2010AL003600

PATIENT
  Sex: Female

DRUGS (3)
  1. FEVERALL [Suspect]
  2. CON MEDS [Concomitant]
  3. PREV MEDS [Concomitant]

REACTIONS (2)
  - ANAPHYLACTIC REACTION [None]
  - BLINDNESS TRANSIENT [None]
